FAERS Safety Report 14216283 (Version 2)
Quarter: 2018Q1

REPORT INFORMATION
  Report Type: Spontaneous
  Country: US (occurrence: US)
  Receive Date: 20171122
  Receipt Date: 20180226
  Transmission Date: 20180508
  Serious: No
  Sender: FDA-Public Use
  Company Number: PHEH2017US036766

PATIENT
  Sex: Female

DRUGS (1)
  1. BIMATOPROST. [Suspect]
     Active Substance: BIMATOPROST
     Indication: PRODUCT USED FOR UNKNOWN INDICATION
     Dosage: 0.3 MG, QD
     Route: 065
     Dates: start: 20170808

REACTIONS (4)
  - Skin discolouration [Not Recovered/Not Resolved]
  - Drug ineffective [Not Recovered/Not Resolved]
  - Acne [Not Recovered/Not Resolved]
  - Madarosis [Not Recovered/Not Resolved]
